FAERS Safety Report 7981367-4 (Version None)
Quarter: 2011Q4

REPORT INFORMATION
  Report Type: 
  Country: None (occurrence: None)
  Receive Date: 20111215
  Receipt Date: 20111207
  Transmission Date: 20120403
  Serious: Yes (Hospitalization)
  Sender: FDA-Public Use
  Company Number: FR-EISAI INC-E2090-01605-SPO-FR

PATIENT
  Sex: Female
  Weight: 55 kg

DRUGS (6)
  1. PREDNISOLONE [Concomitant]
     Dosage: 20 MG UNKNOWN
  2. TEGRETOL [Concomitant]
     Dosage: 800 MG (UNKNOWN)
     Route: 048
     Dates: start: 20110120, end: 20110101
  3. ZONEGRAN [Suspect]
     Indication: EPILEPSY
     Route: 048
     Dates: start: 20100101, end: 20101101
  4. ZONEGRAN [Suspect]
     Dosage: INCREASED UP TO 300 MG DAILY
     Route: 048
     Dates: start: 20101101, end: 20101201
  5. KEPPRA [Concomitant]
     Indication: EPILEPSY
     Dosage: 1000 MG
     Route: 048
  6. ZONEGRAN [Suspect]
     Route: 048
     Dates: start: 20101201

REACTIONS (8)
  - AFFECTIVE DISORDER [None]
  - MEMORY IMPAIRMENT [None]
  - MALIGNANT TRANSFORMATION [None]
  - SLEEP DISORDER [None]
  - CONFUSIONAL STATE [None]
  - ABDOMINAL PAIN [None]
  - MENTAL IMPAIRMENT [None]
  - AGGRESSION [None]
